FAERS Safety Report 5339407-7 (Version None)
Quarter: 2007Q2

REPORT INFORMATION
  Report Type: 
  Country: None (occurrence: None)
  Receive Date: 20070525
  Receipt Date: 20070511
  Transmission Date: 20071010
  Serious: No
  Sender: FDA-Public Use
  Company Number: 2005JP001089

PATIENT
  Age: 7 Year
  Sex: Male

DRUGS (1)
  1. PROGRAF [Suspect]
     Indication: DERMATITIS ATOPIC
     Dosage: 0.03 %, UNK, TOPICAL
     Route: 061

REACTIONS (3)
  - FOLLICULITIS [None]
  - GRANULOMA [None]
  - SKIN PAPILLOMA [None]
